FAERS Safety Report 6668184-2 (Version None)
Quarter: 2010Q2

REPORT INFORMATION
  Report Type: 
  Country: None (occurrence: None)
  Receive Date: 20100405
  Receipt Date: 20100405
  Transmission Date: 20101027
  Serious: Yes (Other)
  Sender: FDA-Public Use
  Company Number: None

PATIENT
  Age: 46 Year
  Sex: Female
  Weight: 89.8122 kg

DRUGS (1)
  1. TYLENOL-500 [Suspect]
     Indication: HEADACHE
     Dosage: 1000MG Q 4-6 HRS PRN PO
     Route: 048
     Dates: start: 20100402, end: 20100402

REACTIONS (4)
  - BURNING SENSATION [None]
  - ORAL DISCOMFORT [None]
  - PRODUCT QUALITY ISSUE [None]
  - STOMATITIS [None]
